FAERS Safety Report 11096228 (Version 2)
Quarter: 2016Q4

REPORT INFORMATION
  Report Type: Report from Study
  Country: BR (occurrence: BR)
  Receive Date: 20150507
  Receipt Date: 20161219
  Transmission Date: 20170206
  Serious: Yes (Other)
  Sender: FDA-Public Use
  Company Number: BR-ROCHE-1573990

PATIENT
  Age: 59 Year
  Sex: Female
  Weight: 76 kg

DRUGS (5)
  1. ANADOR [Concomitant]
     Indication: ARTHRALGIA
     Route: 065
  2. RIVOTRIL [Suspect]
     Active Substance: CLONAZEPAM
     Indication: PRODUCT USED FOR UNKNOWN INDICATION
     Route: 065
  3. SERETIDE [Concomitant]
     Active Substance: FLUTICASONE PROPIONATE\SALMETEROL XINAFOATE
     Indication: ASTHMA
     Route: 065
  4. ACTEMRA [Suspect]
     Active Substance: TOCILIZUMAB
     Indication: RHEUMATOID ARTHRITIS
     Route: 042
     Dates: start: 20140804, end: 20160801
  5. DOLAMIN (BRAZIL) [Concomitant]
     Indication: ARTHRALGIA
     Route: 065

REACTIONS (2)
  - Asthmatic crisis [Recovering/Resolving]
  - Respiratory disorder [Not Recovered/Not Resolved]

NARRATIVE: CASE EVENT DATE: 201412
